FAERS Safety Report 24883211 (Version 1)
Quarter: 2025Q1

REPORT INFORMATION
  Report Type: Spontaneous
  Country: US (occurrence: None)
  Receive Date: 20250123
  Receipt Date: 20250123
  Transmission Date: 20250409
  Serious: Yes (Hospitalization)
  Sender: FDA-CTU
  Company Number: None

PATIENT
  Age: 46 Year
  Sex: Male

DRUGS (1)
  1. TIBSOVO [Suspect]
     Active Substance: IVOSIDENIB
     Indication: Astrocytoma
     Dosage: FREQUENCY : DAILY;?
     Route: 048
     Dates: start: 20241207

REACTIONS (2)
  - Seizure [None]
  - Thrombosis [None]

NARRATIVE: CASE EVENT DATE: 20241221
